FAERS Safety Report 16245971 (Version 3)
Quarter: 2020Q1

REPORT INFORMATION
  Report Type: Spontaneous
  Country: JP (occurrence: JP)
  Receive Date: 20190426
  Receipt Date: 20200221
  Transmission Date: 20200409
  Serious: Yes (Life-Threatening, Hospitalization, Other)
  Sender: FDA-Public Use
  Company Number: JP-009507513-1904JPN002922J

PATIENT
  Age: 76 Year
  Sex: Male
  Weight: 50 kg

DRUGS (1)
  1. KEYTRUDA [Suspect]
     Active Substance: PEMBROLIZUMAB
     Indication: NON-SMALL CELL LUNG CANCER
     Dosage: 200 MILLIGRAM, Q3W
     Route: 041
     Dates: start: 20181112, end: 20190515

REACTIONS (4)
  - Lung disorder [Recovering/Resolving]
  - Secondary adrenocortical insufficiency [Not Recovered/Not Resolved]
  - Pneumothorax [Unknown]
  - Rash [Unknown]

NARRATIVE: CASE EVENT DATE: 2019
